FAERS Safety Report 9838380 (Version 1)
Quarter: 2013Q4

REPORT INFORMATION
  Report Type: Spontaneous
  Country: US (occurrence: None)
  Receive Date: 20131206
  Receipt Date: 20131206
  Transmission Date: 20140711
  Serious: Yes (Hospitalization)
  Sender: FDA-Public Use
  Company Number: 376594

PATIENT
  Age: 22 Year
  Sex: Female
  Weight: 79.4 kg

DRUGS (1)
  1. NOVOLOG [Suspect]
     Indication: TYPE 1 DIABETES MELLITUS
     Dosage: 2.6 UNITS PER HOUR, SUBCUTAN,-PUMP
     Dates: start: 2011

REACTIONS (1)
  - Diabetic ketoacidosis [None]
